FAERS Safety Report 10073054 (Version 1)
Quarter: 2014Q2

REPORT INFORMATION
  Report Type: Spontaneous
  Country: GB (occurrence: GB)
  Receive Date: 20140411
  Receipt Date: 20140411
  Transmission Date: 20141212
  Serious: Yes (Other)
  Sender: FDA-Public Use
  Company Number: ALCN2014GB002262

PATIENT
  Age: 75 Year
  Sex: Female
  Weight: 46 kg

DRUGS (10)
  1. CIPROFLOXACIN [Suspect]
     Dosage: UNK
     Dates: start: 20140224
  2. AMLODIPINE [Concomitant]
     Dosage: UNK
     Dates: start: 20131216, end: 20140113
  3. AMLODIPINE [Concomitant]
     Dosage: UNK
     Dates: start: 20140115, end: 20140212
  4. AMLODIPINE [Concomitant]
     Dosage: UNK
     Dates: start: 20140214, end: 20140314
  5. CODEINE PHOSPHATE [Concomitant]
     Dosage: UNK
     Dates: start: 20140117, end: 20140214
  6. GENTAMICIN [Concomitant]
     Dosage: UNK
     Dates: start: 20140220, end: 20140225
  7. OMEPRAZOLE [Concomitant]
     Dosage: UNK
     Dates: start: 20131216, end: 20140113
  8. OMEPRAZOLE [Concomitant]
     Dosage: UNK
     Dates: start: 20140214, end: 20140314
  9. TRIMETHOPRIM [Concomitant]
     Dosage: UNK
     Dates: start: 20140106, end: 20140113
  10. ZOPICLONE [Concomitant]
     Dosage: UNK
     Dates: start: 20140213, end: 20140313

REACTIONS (1)
  - Deafness [Recovering/Resolving]
